FAERS Safety Report 13897407 (Version 7)
Quarter: 2017Q4

REPORT INFORMATION
  Report Type: Report from Study
  Country: None (occurrence: TR)
  Receive Date: 20170823
  Receipt Date: 20171212
  Transmission Date: 20180320
  Serious: Yes (Death, Hospitalization, Other)
  Sender: FDA-Public Use
  Company Number: TR-ABBVIE-17K-161-2078970-00

PATIENT
  Age: 57 Year
  Sex: Female
  Weight: 95 kg

DRUGS (1)
  1. DUODOPA [Suspect]
     Active Substance: CARBIDOPA\LEVODOPA
     Indication: PARKINSON^S DISEASE
     Dosage: MORNING DOSE : 6.3 ML CONTINOUS DOSE: 4.2 ML EXTRA DOSE: 1.5 ML
     Route: 050
     Dates: start: 20161207, end: 20170822

REACTIONS (3)
  - Subarachnoid haemorrhage [Fatal]
  - Duodenal obstruction [Not Recovered/Not Resolved]
  - Abdominal pain [Not Recovered/Not Resolved]

NARRATIVE: CASE EVENT DATE: 2017
